FAERS Safety Report 13164387 (Version 3)
Quarter: 2017Q2

REPORT INFORMATION
  Report Type: Spontaneous
  Country: BR (occurrence: BR)
  Receive Date: 20170130
  Receipt Date: 20170620
  Transmission Date: 20170830
  Serious: Yes (Other)
  Sender: FDA-Public Use
  Company Number: BR-LUNDBECK-DKLU2025749

PATIENT
  Age: 25 Year
  Sex: Male

DRUGS (8)
  1. GARDENAL [Suspect]
     Active Substance: PHENOBARBITAL
     Indication: SEIZURE
  2. URBANIL [Concomitant]
     Active Substance: CLOBAZAM
     Indication: PRODUCT USED FOR UNKNOWN INDICATION
     Route: 065
  3. GARDENAL [Suspect]
     Active Substance: PHENOBARBITAL
     Indication: SEIZURE
  4. HIDANTAL [Concomitant]
     Active Substance: PHENYTOIN SODIUM
     Indication: PRODUCT USED FOR UNKNOWN INDICATION
     Route: 065
  5. FRISIUM [Suspect]
     Active Substance: CLOBAZAM
     Indication: SEIZURE
     Route: 048
     Dates: start: 2000
  6. DEPAKENE [Concomitant]
     Active Substance: VALPROIC ACID
     Indication: PRODUCT USED FOR UNKNOWN INDICATION
     Route: 065
     Dates: start: 201603
  7. GARDENAL [Suspect]
     Active Substance: PHENOBARBITAL
     Indication: EPILEPSY
     Route: 048
     Dates: start: 2000
  8. DEPAKENE [Suspect]
     Active Substance: VALPROIC ACID
     Indication: SEIZURE
     Route: 048
     Dates: start: 2000

REACTIONS (6)
  - Hallucination [Unknown]
  - Drug ineffective [Unknown]
  - Anxiety [Unknown]
  - Seizure [Not Recovered/Not Resolved]
  - Arachnoid cyst [Unknown]
  - Depression [Unknown]
